FAERS Safety Report 7323945-1 (Version None)
Quarter: 2011Q1

REPORT INFORMATION
  Report Type: 
  Country: None (occurrence: None)
  Receive Date: 20110301
  Receipt Date: 20110222
  Transmission Date: 20110831
  Serious: Yes (Hospitalization)
  Sender: FDA-Public Use
  Company Number: B0699898A

PATIENT
  Sex: Female

DRUGS (7)
  1. CALTAN [Concomitant]
     Indication: BLOOD PHOSPHORUS INCREASED
     Dosage: 1500MG PER DAY
     Route: 048
  2. KALIMATE [Concomitant]
     Dosage: 20G PER DAY
     Route: 048
  3. LEBENIN [Concomitant]
     Dosage: .99G PER DAY
     Route: 048
  4. GASTER [Concomitant]
     Indication: GASTRITIS
     Dosage: 10MG PER DAY
     Route: 048
  5. PURSENNID [Concomitant]
     Indication: CONSTIPATION
     Dosage: 24MG PER DAY
     Route: 048
  6. VALTREX [Suspect]
     Indication: HERPES ZOSTER
     Dosage: 250MG PER DAY
     Route: 048
     Dates: start: 20110129, end: 20110131
  7. RENAGEL [Concomitant]
     Indication: BLOOD PHOSPHORUS INCREASED
     Route: 048

REACTIONS (3)
  - DELIRIUM [None]
  - RESTLESSNESS [None]
  - ABASIA [None]
